FAERS Safety Report 16935892 (Version 1)
Quarter: 2019Q4

REPORT INFORMATION
  Report Type: Spontaneous
  Country: US (occurrence: US)
  Receive Date: 20191018
  Receipt Date: 20191018
  Transmission Date: 20200122
  Serious: Yes (Hospitalization, Disabling)
  Sender: FDA-Public Use
  Company Number: US-INSMED, INC.-US-INS-19-03361

PATIENT
  Age: 57 Year
  Sex: Female

DRUGS (4)
  1. AZITHROMYCIN ANHYDROUS. [Suspect]
     Active Substance: AZITHROMYCIN ANHYDROUS
     Indication: MYCOBACTERIAL INFECTION
  2. ARIKAYCE [Suspect]
     Active Substance: AMIKACIN
     Indication: MYCOBACTERIAL INFECTION
  3. LAMIRA NEBULIZER SYSTEM [Suspect]
     Active Substance: DEVICE
  4. IMIPENEM [Suspect]
     Active Substance: IMIPENEM
     Indication: MYCOBACTERIAL INFECTION

REACTIONS (4)
  - Granulomatosis with polyangiitis [Unknown]
  - Acute kidney injury [Unknown]
  - Product use in unapproved indication [Unknown]
  - Device dependence [Unknown]
